FAERS Safety Report 12142585 (Version 1)
Quarter: 2016Q1

REPORT INFORMATION
  Report Type: Spontaneous
  Country: US (occurrence: US)
  Receive Date: 20160303
  Receipt Date: 20160303
  Transmission Date: 20160526
  Serious: Yes (Other)
  Sender: FDA-Public Use
  Company Number: US-BRISTOL-MYERS SQUIBB COMPANY-BMS-2016-014033

PATIENT
  Age: 63 Year
  Sex: Female
  Weight: 77.98 kg

DRUGS (6)
  1. ABILIFY [Suspect]
     Active Substance: ARIPIPRAZOLE
     Dosage: 5 MG, QD
     Route: 048
     Dates: start: 20160217
  2. ABILIFY [Suspect]
     Active Substance: ARIPIPRAZOLE
     Indication: BIPOLAR DISORDER
     Dosage: 2 MG, QD
     Route: 048
  3. CLONAZEPAM. [Concomitant]
     Active Substance: CLONAZEPAM
     Indication: PRODUCT USED FOR UNKNOWN INDICATION
     Route: 065
  4. PROZAC [Concomitant]
     Active Substance: FLUOXETINE HYDROCHLORIDE
     Indication: PRODUCT USED FOR UNKNOWN INDICATION
     Route: 065
  5. LUNESTA [Concomitant]
     Active Substance: ESZOPICLONE
     Indication: MANIA
     Dosage: 3 MG, QD
     Route: 048
     Dates: start: 20160217
  6. PROPRANOLOL [Concomitant]
     Active Substance: PROPRANOLOL\PROPRANOLOL HYDROCHLORIDE
     Indication: PRODUCT USED FOR UNKNOWN INDICATION
     Route: 065

REACTIONS (4)
  - Mania [Recovering/Resolving]
  - Off label use [Unknown]
  - Insomnia [Not Recovered/Not Resolved]
  - Therapeutic product ineffective [Unknown]

NARRATIVE: CASE EVENT DATE: 201602
